FAERS Safety Report 8028748-0 (Version None)
Quarter: 2012Q1

REPORT INFORMATION
  Report Type: 
  Country: None (occurrence: None)
  Receive Date: 20120106
  Receipt Date: 20120104
  Transmission Date: 20120608
  Serious: Yes (Hospitalization, Disabling)
  Sender: FDA-Public Use
  Company Number: DE-MERCK-1201DEU00009

PATIENT
  Age: 74 Year
  Sex: Female

DRUGS (2)
  1. ZOCOR [Suspect]
     Route: 048
     Dates: end: 20110721
  2. VYTORIN [Suspect]
     Indication: HYPERCHOLESTEROLAEMIA
     Route: 048
     Dates: start: 20110101, end: 20110101

REACTIONS (5)
  - TENDERNESS [None]
  - RHABDOMYOLYSIS [None]
  - MONOPARESIS [None]
  - PARESIS [None]
  - MYOPATHY [None]
